FAERS Safety Report 17828585 (Version 1)
Quarter: 2020Q2

REPORT INFORMATION
  Report Type: Spontaneous
  Country: PL (occurrence: PL)
  Receive Date: 20200527
  Receipt Date: 20200527
  Transmission Date: 20200714
  Serious: Yes (Other)
  Sender: FDA-Public Use
  Company Number: PL-ACCORD-182986

PATIENT
  Age: 61 Year
  Sex: Male

DRUGS (1)
  1. FLUOROURACIL. [Suspect]
     Active Substance: FLUOROURACIL
     Indication: PROSTATE CANCER

REACTIONS (5)
  - Dehydration [Unknown]
  - Off label use [Unknown]
  - Nocturia [Unknown]
  - Diarrhoea [Unknown]
  - Hypokalaemia [Unknown]
